FAERS Safety Report 6331251-7 (Version None)
Quarter: 2009Q3

REPORT INFORMATION
  Report Type: 
  Country: None (occurrence: None)
  Receive Date: 20090827
  Receipt Date: 20090817
  Transmission Date: 20100115
  Serious: Yes (Hospitalization, Other)
  Sender: FDA-Public Use
  Company Number: HQWYE259920JUL04

PATIENT
  Sex: Female

DRUGS (6)
  1. PREMPRO [Suspect]
     Indication: MENOPAUSAL SYMPTOMS
  2. ESTRING [Suspect]
  3. FEMHRT [Suspect]
  4. CYCRIN [Suspect]
  5. PROVERA [Suspect]
  6. ESTRACE [Suspect]

REACTIONS (3)
  - BREAST CANCER METASTATIC [None]
  - NON-HODGKIN'S LYMPHOMA [None]
  - THROMBOSIS [None]
